FAERS Safety Report 4946405-1 (Version None)
Quarter: 2006Q1

REPORT INFORMATION
  Report Type: 
  Country: None (occurrence: None)
  Receive Date: 20060316
  Receipt Date: 20060316
  Transmission Date: 20060701
  Serious: Yes (Life-Threatening, Other)
  Sender: FDA-Public Use
  Company Number: None

PATIENT
  Sex: Female
  Weight: 94.8018 kg

DRUGS (8)
  1. AZITHROMYCIN [Suspect]
     Indication: SINUSITIS
     Dosage: 250MG  2 TABS X1  PO
     Route: 048
     Dates: start: 20060223
  2. LISINOPRIL [Concomitant]
  3. ACIPHEX [Concomitant]
  4. HYDROCHLOROTHIAZIDE [Concomitant]
  5. ADVAIR DISKUS 100/50 [Concomitant]
  6. ALBUTEROL [Concomitant]
  7. EPIPEN [Concomitant]
  8. BENADRYL [Concomitant]

REACTIONS (4)
  - CONTRAINDICATION TO MEDICAL TREATMENT [None]
  - DRUG HYPERSENSITIVITY [None]
  - EYE SWELLING [None]
  - PRURITUS [None]
